FAERS Safety Report 5648358-X (Version None)
Quarter: 2008Q1

REPORT INFORMATION
  Report Type: 
  Country: None (occurrence: None)
  Receive Date: 20080303
  Receipt Date: 20080303
  Transmission Date: 20080703
  Serious: Yes (Life-Threatening, Disabling, Other)
  Sender: FDA-Public Use
  Company Number: None

PATIENT
  Age: 42 Year
  Sex: Female

DRUGS (1)
  1. SEPTOCAINE [Suspect]
     Indication: TOOTH EXTRACTION
     Dosage: 1X NERVE BLOCK
     Dates: start: 20031209

REACTIONS (2)
  - MEDICATION ERROR [None]
  - PAIN [None]
